FAERS Safety Report 7712569-X (Version None)
Quarter: 2011Q3

REPORT INFORMATION
  Report Type: 
  Country: None (occurrence: None)
  Receive Date: 20110826
  Receipt Date: 20110823
  Transmission Date: 20111222
  Serious: Yes (Hospitalization)
  Sender: FDA-Public Use
  Company Number: US-VERTEX PHARMACEUTICALS INC.-AE-2011-001046

PATIENT
  Sex: Female
  Weight: 80 kg

DRUGS (3)
  1. RIBAVIRIN [Concomitant]
     Indication: HEPATITIS C
     Dates: start: 20110811
  2. PEGASYS [Concomitant]
     Indication: HEPATITIS C
     Dates: start: 20110811
  3. INCIVEK [Suspect]
     Indication: HEPATITIS C
     Dates: start: 20110811

REACTIONS (1)
  - LOSS OF CONSCIOUSNESS [None]
